FAERS Safety Report 4332295-7 (Version None)
Quarter: 2004Q1

REPORT INFORMATION
  Report Type: 
  Country: None (occurrence: None)
  Receive Date: 20040331
  Receipt Date: 20040322
  Transmission Date: 20041129
  Serious: Yes (Hospitalization)
  Sender: FDA-Public Use
  Company Number: 2004205199SE

PATIENT
  Age: 69 Year
  Sex: Male

DRUGS (2)
  1. CLINDAMYCIN [Suspect]
     Indication: SKIN ULCER
     Dosage: 900 MG, DAILY, ORAL
     Route: 048
  2. INSULIN [Concomitant]

REACTIONS (1)
  - LARYNGITIS [None]
